FAERS Safety Report 5653339-6 (Version None)
Quarter: 2008Q1

REPORT INFORMATION
  Report Type: 
  Country: None (occurrence: None)
  Receive Date: 20080306
  Receipt Date: 20080226
  Transmission Date: 20080703
  Serious: Yes (Hospitalization)
  Sender: FDA-Public Use
  Company Number: JP-MERCK-0802USA04787

PATIENT
  Age: 86 Year
  Sex: Male

DRUGS (5)
  1. FOSAMAX [Suspect]
     Indication: OSTEOPOROSIS
     Route: 048
     Dates: start: 20080110, end: 20080205
  2. ONEALFA [Concomitant]
     Route: 048
     Dates: start: 20071224, end: 20080205
  3. TAKEPRON [Concomitant]
     Route: 048
     Dates: start: 20071224, end: 20080205
  4. ASPIRIN [Concomitant]
     Route: 048
     Dates: start: 20071224, end: 20080205
  5. PLETAL [Concomitant]
     Route: 048
     Dates: start: 20071224, end: 20080205

REACTIONS (1)
  - SMALL INTESTINAL HAEMORRHAGE [None]
